FAERS Safety Report 5704534-9 (Version None)
Quarter: 2008Q2

REPORT INFORMATION
  Report Type: 
  Country: None (occurrence: None)
  Receive Date: 20080414
  Receipt Date: 20080407
  Transmission Date: 20081010
  Serious: Yes (Other)
  Sender: FDA-Public Use
  Company Number: JP-ROCHE-548979

PATIENT
  Age: 73 Year
  Sex: Male
  Weight: 60.3 kg

DRUGS (6)
  1. KYTRIL [Suspect]
     Route: 041
     Dates: start: 20071130
  2. AVASTIN [Suspect]
     Indication: LARGE INTESTINE CARCINOMA
     Route: 041
     Dates: start: 20071130, end: 20080206
  3. ELPLAT [Suspect]
     Indication: LARGE INTESTINE CARCINOMA
     Route: 041
     Dates: start: 20071130
  4. FLUOROURACIL [Suspect]
     Indication: LARGE INTESTINE CARCINOMA
     Route: 041
     Dates: start: 20071130
  5. ISOVORIN [Suspect]
     Indication: LARGE INTESTINE CARCINOMA
     Route: 041
     Dates: start: 20071130
  6. DEXART [Suspect]
     Route: 041
     Dates: start: 20071130

REACTIONS (1)
  - PULMONARY ARTERY THROMBOSIS [None]
